APPROVED DRUG PRODUCT: CIPROFLOXACIN HYDROCHLORIDE
Active Ingredient: CIPROFLOXACIN HYDROCHLORIDE
Strength: EQ 500MG BASE
Dosage Form/Route: TABLET;ORAL
Application: A076912 | Product #003
Applicant: TARO PHARMACEUTICAL INDUSTRIES LTD
Approved: Oct 6, 2004 | RLD: No | RS: No | Type: DISCN